FAERS Safety Report 13996805 (Version 3)
Quarter: 2018Q3

REPORT INFORMATION
  Report Type: Spontaneous
  Country: US (occurrence: US)
  Receive Date: 20170921
  Receipt Date: 20180903
  Transmission Date: 20181010
  Serious: No
  Sender: FDA-Public Use
  Company Number: US-PFIZER INC-2017405217

PATIENT
  Age: 14 Year
  Sex: Female

DRUGS (16)
  1. DITHROCREAM [Suspect]
     Active Substance: ANTHRALIN
     Indication: ALOPECIA
  2. ELOCON [Suspect]
     Active Substance: MOMETASONE FUROATE
     Indication: RHEUMATOID ARTHRITIS
     Dosage: UNK
     Dates: start: 2015, end: 2015
  3. METHOTREXATE SODIUM. [Suspect]
     Active Substance: METHOTREXATE SODIUM
     Indication: RHEUMATOID ARTHRITIS
     Dosage: UNK
  4. CLOBETASOL [Suspect]
     Active Substance: CLOBETASOL
     Indication: ALOPECIA
  5. PREDNISONE. [Suspect]
     Active Substance: PREDNISONE
     Indication: RHEUMATOID ARTHRITIS
     Dosage: UNK
     Dates: start: 2014, end: 201406
  6. ROGAINE [Suspect]
     Active Substance: MINOXIDIL
     Indication: ALOPECIA
  7. CLOBETASOL [Suspect]
     Active Substance: CLOBETASOL
     Indication: RHEUMATOID ARTHRITIS
     Dosage: UNK UNK, 2X/DAY
     Dates: start: 2016, end: 2016
  8. PREDNISONE. [Suspect]
     Active Substance: PREDNISONE
     Indication: ALOPECIA
  9. FEXOFENADINE [Suspect]
     Active Substance: FEXOFENADINE\FEXOFENADINE HYDROCHLORIDE
     Indication: RHEUMATOID ARTHRITIS
     Dosage: UNK
     Dates: start: 2014, end: 2014
  10. FEXOFENADINE [Suspect]
     Active Substance: FEXOFENADINE\FEXOFENADINE HYDROCHLORIDE
     Indication: HYPERSENSITIVITY
  11. ELOCON [Suspect]
     Active Substance: MOMETASONE FUROATE
     Indication: ALOPECIA
  12. FLUTICASONE. [Suspect]
     Active Substance: FLUTICASONE
     Indication: HYPERSENSITIVITY
  13. METHOTREXATE SODIUM. [Suspect]
     Active Substance: METHOTREXATE SODIUM
     Indication: ALOPECIA
  14. DITHROCREAM [Suspect]
     Active Substance: ANTHRALIN
     Indication: RHEUMATOID ARTHRITIS
     Dosage: UNK
     Dates: start: 2013, end: 2013
  15. ROGAINE [Suspect]
     Active Substance: MINOXIDIL
     Indication: RHEUMATOID ARTHRITIS
     Dosage: UNK
  16. FLUTICASONE. [Suspect]
     Active Substance: FLUTICASONE
     Indication: RHEUMATOID ARTHRITIS
     Dosage: UNK

REACTIONS (1)
  - Drug ineffective [Unknown]
